FAERS Safety Report 10657879 (Version 1)
Quarter: 2014Q4

REPORT INFORMATION
  Report Type: Report from Study
  Country: US (occurrence: US)
  Receive Date: 20141217
  Receipt Date: 20141217
  Transmission Date: 20150529
  Serious: No
  Sender: FDA-Public Use
  Company Number: US-AMGEN INC.-USASL2014096431

PATIENT
  Sex: Female
  Weight: 59.86 kg

DRUGS (2)
  1. ENBREL [Suspect]
     Active Substance: ETANERCEPT
     Indication: RHEUMATOID ARTHRITIS
     Dosage: 50 MG, QWK
     Route: 058
     Dates: start: 201304
  2. ENBREL [Suspect]
     Active Substance: ETANERCEPT
     Indication: POLYARTHRITIS

REACTIONS (9)
  - Contusion [Recovered/Resolved]
  - Breast mass [Unknown]
  - Alopecia [Unknown]
  - Nausea [Unknown]
  - Migraine [Unknown]
  - Injection site bruising [Unknown]
  - Fall [Unknown]
  - Dizziness [Unknown]
  - Skin abrasion [Unknown]

NARRATIVE: CASE EVENT DATE: 201310
